FAERS Safety Report 4643428-7 (Version None)
Quarter: 2005Q2

REPORT INFORMATION
  Report Type: 
  Country: None (occurrence: None)
  Receive Date: 20050324
  Receipt Date: 20050215
  Transmission Date: 20051028
  Serious: Yes (Other)
  Sender: FDA-Public Use
  Company Number: 212489

PATIENT
  Age: 48 Year
  Sex: Female
  Weight: 59.3 kg

DRUGS (8)
  1. AVASTIN [Suspect]
     Indication: COLON CANCER METASTATIC
     Dosage: 309,Q2W,INTRAVENOUS
     Route: 042
     Dates: start: 20050106
  2. FLUOROURACIL [Concomitant]
  3. OXALIPLATIN (OXALIPLATIN) [Concomitant]
  4. LEUCOVORIN CALCIUM [Concomitant]
  5. NORVASC [Concomitant]
  6. PHENERGAN [Concomitant]
  7. DECADRON SRC [Concomitant]
  8. REGLAN [Concomitant]

REACTIONS (1)
  - JUGULAR VEIN THROMBOSIS [None]
